FAERS Safety Report 5088437-1 (Version None)
Quarter: 2006Q3

REPORT INFORMATION
  Report Type: 
  Country: None (occurrence: None)
  Receive Date: 20060821
  Receipt Date: 20060802
  Transmission Date: 20061208
  Serious: Yes (Other)
  Sender: FDA-Public Use
  Company Number: CHPA2006US07569

PATIENT
  Age: 32 Year
  Sex: Female
  Weight: 59 kg

DRUGS (1)
  1. EXCEDRIN EXTRA STENGTH (NCH) (CAFFEINE CITRATE, ACETYLSALICYLIC ACID, [Suspect]
     Indication: HEADACHE
     Dosage: 2 DF, ONCE/SINGLE, ORAL
     Route: 048
     Dates: start: 20060802, end: 20060802

REACTIONS (4)
  - EYE INFLAMMATION [None]
  - EYE PRURITUS [None]
  - INFLAMMATION [None]
  - PRURITUS [None]
